FAERS Safety Report 8220936-3 (Version None)
Quarter: 2012Q1

REPORT INFORMATION
  Report Type: 
  Country: None (occurrence: None)
  Receive Date: 20120320
  Receipt Date: 20120309
  Transmission Date: 20120608
  Serious: Yes (Hospitalization, Other)
  Sender: FDA-Public Use
  Company Number: JP-BRISTOL-MYERS SQUIBB COMPANY-16373565

PATIENT
  Age: 17 Year
  Sex: Female

DRUGS (4)
  1. DIPHENHYDRAMINE HCL [Suspect]
     Dosage: 72 TABS.
     Route: 048
  2. ETIZOLAM [Concomitant]
  3. ABILIFY [Suspect]
     Indication: SCHIZOPHRENIA
     Route: 048
  4. NITRAZEPAM [Concomitant]

REACTIONS (21)
  - SEROTONIN SYNDROME [None]
  - COGNITIVE DISORDER [None]
  - TREMOR [None]
  - THINKING ABNORMAL [None]
  - DYSKINESIA [None]
  - BODY TEMPERATURE INCREASED [None]
  - WHITE BLOOD CELL COUNT INCREASED [None]
  - HYPERHIDROSIS [None]
  - SOLILOQUY [None]
  - SUICIDE ATTEMPT [None]
  - HALLUCINATION [None]
  - RESPIRATORY RATE INCREASED [None]
  - HEART RATE INCREASED [None]
  - MUSCLE TIGHTNESS [None]
  - HYPERREFLEXIA [None]
  - ASTHENIA [None]
  - NAUSEA [None]
  - DELIRIUM [None]
  - AMNESIA [None]
  - MYDRIASIS [None]
  - BLOOD CREATINE PHOSPHOKINASE INCREASED [None]
